FAERS Safety Report 22049017 (Version 1)
Quarter: 2023Q1

REPORT INFORMATION
  Report Type: Spontaneous
  Country: US (occurrence: None)
  Receive Date: 20230228
  Receipt Date: 20230228
  Transmission Date: 20230417
  Serious: Yes (Death)
  Sender: FDA-Public Use
  Company Number: None

PATIENT
  Age: 86 Year
  Sex: Female

DRUGS (8)
  1. PROLIA [Suspect]
     Active Substance: DENOSUMAB
     Indication: Osteoporosis
     Dosage: OTHER FREQUENCY : 180 DAYS;?
     Route: 058
     Dates: start: 20220828
  2. ELIQUIS [Concomitant]
  3. LASIX [Concomitant]
  4. LIPITOR [Concomitant]
  5. LOSARTAN [Concomitant]
  6. METOPROLOL [Concomitant]
     Active Substance: METOPROLOL
  7. NIRTOGLYERIN [Concomitant]
  8. SYNTHROID [Concomitant]

REACTIONS (1)
  - Death [None]

NARRATIVE: CASE EVENT DATE: 20221201
